FAERS Safety Report 9168737 (Version 2)
Quarter: 2013Q1

REPORT INFORMATION
  Report Type: Spontaneous
  Country: NL (occurrence: NL)
  Receive Date: 20130318
  Receipt Date: 20130329
  Transmission Date: 20140127
  Serious: Yes (Death, Other)
  Sender: FDA-Public Use
  Company Number: NL-PFIZER INC-2013087369

PATIENT
  Age: 72 Year
  Sex: Male

DRUGS (3)
  1. CHAMPIX [Suspect]
     Indication: SMOKING CESSATION THERAPY
     Dosage: UNK
  2. CHAMPIX [Suspect]
     Dosage: 1 MG, 1X/DAY
     Dates: start: 20101202
  3. NITROFURANTOIN [Concomitant]
     Indication: URINARY TRACT INFECTION
     Dosage: 100 MG, 2X/DAY
     Route: 048
     Dates: start: 20101102, end: 20101109

REACTIONS (9)
  - Fall [Fatal]
  - Malaise [Not Recovered/Not Resolved]
  - Dizziness [Not Recovered/Not Resolved]
  - Abnormal dreams [Not Recovered/Not Resolved]
  - Nausea [Not Recovered/Not Resolved]
  - Decreased appetite [Not Recovered/Not Resolved]
  - Dry mouth [Not Recovered/Not Resolved]
  - Micturition urgency [Not Recovered/Not Resolved]
  - Constipation [Not Recovered/Not Resolved]
